FAERS Safety Report 5989299-8 (Version None)
Quarter: 2008Q4

REPORT INFORMATION
  Report Type: 
  Country: None (occurrence: None)
  Receive Date: 20081210
  Receipt Date: 20081208
  Transmission Date: 20090506
  Serious: Yes (Other)
  Sender: FDA-Public Use
  Company Number: AU-BRISTOL-MYERS SQUIBB COMPANY-14436232

PATIENT
  Age: 53 Year
  Sex: Female

DRUGS (8)
  1. CYCLOPHOSPHAMIDE [Suspect]
     Dosage: 5 DOSE UNSPECIFIED
     Route: 042
  2. CARMUSTINE [Suspect]
  3. CYTARABINE [Suspect]
  4. FLUDARABINE PHOSPHATE [Suspect]
     Dosage: 5 DOSE UNSPECIFIED
  5. MELPHALAN [Suspect]
  6. ETOPOSIDE [Concomitant]
  7. IFOSFAMIDE [Concomitant]
  8. CARBOPLATIN [Concomitant]

REACTIONS (1)
  - MYELODYSPLASTIC SYNDROME [None]
